FAERS Safety Report 22312698 (Version 1)
Quarter: 2023Q2

REPORT INFORMATION
  Report Type: Spontaneous
  Country: US (occurrence: US)
  Receive Date: 20230512
  Receipt Date: 20230512
  Transmission Date: 20230722
  Serious: Yes (Other)
  Sender: FDA-Public Use
  Company Number: US-ROCHE-3205895

PATIENT
  Age: 60 Year
  Sex: Female

DRUGS (6)
  1. CAPECITABINE [Suspect]
     Active Substance: CAPECITABINE
     Indication: Colorectal cancer metastatic
     Dosage: TAKE 1 TABLET BY MOUTH TWICE A DAY D1-14
     Route: 048
  2. CAPECITABINE [Suspect]
     Active Substance: CAPECITABINE
     Indication: Rectal cancer
     Dosage: TAKE 1 TABLET BY MOUTH TWICE A DAY D1-14
     Route: 048
  3. CAPECITABINE [Suspect]
     Active Substance: CAPECITABINE
     Indication: Colorectal cancer metastatic
     Dosage: TAKE 3 TABLET BY MOUTH TWICE A DAY D1-14, THEN 7D OFF
     Route: 048
  4. CAPECITABINE [Suspect]
     Active Substance: CAPECITABINE
     Indication: Rectal cancer
     Dosage: TAKE 3 TABLET BY MOUTH TWICE A DAY D1-14, THEN 7D OFF
     Route: 048
  5. CAPECITABINE [Suspect]
     Active Substance: CAPECITABINE
     Indication: Colorectal cancer metastatic
     Dosage: 1 OTHER CAPECITABINE PRESCRIPTION FOR 1650 MG
     Route: 048
  6. CAPECITABINE [Suspect]
     Active Substance: CAPECITABINE
     Indication: Rectal cancer
     Dosage: 1 OTHER CAPECITABINE PRESCRIPTION FOR 1650 MG
     Route: 048

REACTIONS (2)
  - Cerebrovascular accident [Unknown]
  - Facial paralysis [Unknown]

NARRATIVE: CASE EVENT DATE: 20221011
